FAERS Safety Report 23802810 (Version 5)
Quarter: 2024Q3

REPORT INFORMATION
  Report Type: Spontaneous
  Country: US (occurrence: US)
  Receive Date: 20240501
  Receipt Date: 20240710
  Transmission Date: 20241016
  Serious: Yes (Other)
  Sender: ROCHE
  Company Number: US-ROCHE-3553860

PATIENT

DRUGS (2)
  1. ACTIVASE [Suspect]
     Active Substance: ALTEPLASE
     Indication: Product used for unknown indication
     Dosage: 100 ML VIAL PACKAGED WITH 100 MG ACTIVASE
     Route: 065
  2. STERILE WATER [Suspect]
     Active Substance: WATER
     Indication: Product used for unknown indication
     Dosage: 100ML VIAL PACKAGED WITH 100MG ACTIVASE
     Route: 065

REACTIONS (3)
  - Product complaint [Unknown]
  - No adverse event [Unknown]
  - Inappropriate schedule of product administration [Unknown]

NARRATIVE: CASE EVENT DATE: 20240424
